FAERS Safety Report 8328542-7 (Version None)
Quarter: 2012Q2

REPORT INFORMATION
  Report Type: 
  Country: None (occurrence: None)
  Receive Date: 20120502
  Receipt Date: 20100728
  Transmission Date: 20120825
  Serious: No
  Sender: FDA-Public Use
  Company Number: US-TEVA-2010003977

PATIENT
  Sex: Female

DRUGS (1)
  1. NUVIGIL [Suspect]
     Route: 048
     Dates: start: 20100101

REACTIONS (6)
  - GLOSSODYNIA [None]
  - ORAL MUCOSAL ERYTHEMA [None]
  - GINGIVAL PAIN [None]
  - GINGIVAL DISCOLOURATION [None]
  - ORAL DISCOMFORT [None]
  - TONGUE DISORDER [None]
